FAERS Safety Report 8377681-3 (Version None)
Quarter: 2012Q2

REPORT INFORMATION
  Report Type: 
  Country: None (occurrence: None)
  Receive Date: 20120522
  Receipt Date: 20120517
  Transmission Date: 20120825
  Serious: Yes (Death, Hospitalization)
  Sender: FDA-Public Use
  Company Number: US-GLAXOSMITHKLINE-A0884051A

PATIENT
  Age: 65 Year
  Sex: Female

DRUGS (6)
  1. ACTOS [Concomitant]
     Dates: end: 20040101
  2. GLUCOPHAGE [Concomitant]
  3. AVANDIA [Suspect]
     Indication: DIABETES MELLITUS
     Dosage: 8MG TWICE PER DAY
     Route: 048
     Dates: end: 20010315
  4. COMBIVENT [Concomitant]
  5. GLYBURIDE [Concomitant]
  6. LASIX [Concomitant]

REACTIONS (1)
  - MYOCARDIAL INFARCTION [None]
